FAERS Safety Report 22196208 (Version 10)
Quarter: 2025Q2

REPORT INFORMATION
  Report Type: Report from Study
  Country: CA (occurrence: CA)
  Receive Date: 20230411
  Receipt Date: 20250619
  Transmission Date: 20250716
  Serious: Yes (Hospitalization, Disabling)
  Sender: BIOCON
  Company Number: CA-MYLANLABS-2023M1037551

PATIENT

DRUGS (7)
  1. HULIO [Suspect]
     Active Substance: ADALIMUMAB-FKJP
     Indication: Psoriatic arthropathy
     Route: 058
     Dates: start: 20220412
  2. HULIO [Suspect]
     Active Substance: ADALIMUMAB-FKJP
     Indication: Spondyloarthropathy
     Route: 058
     Dates: start: 20230518
  3. HULIO [Suspect]
     Active Substance: ADALIMUMAB-FKJP
     Route: 058
  4. HULIO [Suspect]
     Active Substance: ADALIMUMAB-FKJP
     Dosage: 40 MILLIGRAM, QWEEK
     Route: 058
     Dates: start: 20250415
  5. HULIO [Suspect]
     Active Substance: ADALIMUMAB-FKJP
     Dosage: 40 MILLIGRAM, QWEEK
     Route: 058
     Dates: start: 20250421
  6. CHOLECALCIFEROL [Concomitant]
     Active Substance: CHOLECALCIFEROL
     Indication: Product used for unknown indication
     Route: 048
  7. CHOLECALCIFEROL [Concomitant]
     Active Substance: CHOLECALCIFEROL
     Dosage: 10000 INTERNATIONAL UNIT, QWEEK
     Route: 065

REACTIONS (13)
  - Hospitalisation [Unknown]
  - Loss of personal independence in daily activities [Unknown]
  - Nervous system disorder [Unknown]
  - Condition aggravated [Unknown]
  - Hypokinesia [Unknown]
  - Fibromyalgia [Unknown]
  - C-reactive protein increased [Unknown]
  - Photosensitivity reaction [Unknown]
  - Dizziness [Unknown]
  - Product dose omission issue [Unknown]
  - Inappropriate schedule of product administration [Unknown]
  - Off label use [Unknown]
  - Product supply issue [Unknown]

NARRATIVE: CASE EVENT DATE: 20250109
